FAERS Safety Report 16544113 (Version 1)
Quarter: 2019Q3

REPORT INFORMATION
  Report Type: Spontaneous
  Country: AR (occurrence: AR)
  Receive Date: 20190709
  Receipt Date: 20190709
  Transmission Date: 20191004
  Serious: Yes (Hospitalization, Other)
  Sender: FDA-Public Use
  Company Number: AR-009507513-1906ARG010348

PATIENT
  Sex: Male

DRUGS (2)
  1. KEYTRUDA [Suspect]
     Active Substance: PEMBROLIZUMAB
     Indication: RENAL NEOPLASM
     Dosage: UNK
     Dates: start: 20190503
  2. KEYTRUDA [Suspect]
     Active Substance: PEMBROLIZUMAB
     Dosage: UNK
     Dates: start: 20190613

REACTIONS (12)
  - Respiratory failure [Unknown]
  - Diplopia [Unknown]
  - General physical health deterioration [Unknown]
  - Dyspnoea [Unknown]
  - Gait inability [Unknown]
  - Myositis [Unknown]
  - Inappropriate schedule of product administration [Unknown]
  - Drug ineffective [Unknown]
  - Myalgia [Unknown]
  - Laboratory test abnormal [Recovering/Resolving]
  - Muscular weakness [Unknown]
  - Off label use [Unknown]

NARRATIVE: CASE EVENT DATE: 2019
